FAERS Safety Report 5779659-2 (Version None)
Quarter: 2008Q2

REPORT INFORMATION
  Report Type: 
  Country: None (occurrence: None)
  Receive Date: 20080619
  Receipt Date: 20080612
  Transmission Date: 20081010
  Serious: Yes (Hospitalization)
  Sender: FDA-Public Use
  Company Number: DE-PFIZER INC-2008050256

PATIENT
  Sex: Female
  Weight: 110 kg

DRUGS (8)
  1. SU-011,248 [Suspect]
     Indication: BREAST CANCER
     Dates: start: 20080227, end: 20080511
  2. DOCETAXEL [Suspect]
     Indication: BREAST CANCER
     Route: 042
     Dates: start: 20080416, end: 20080528
  3. ALPHAGAN [Concomitant]
  4. LORZAAR [Concomitant]
     Route: 048
  5. XALATAN [Concomitant]
  6. METOPROLOL SUCCINATE [Concomitant]
     Route: 048
  7. PRAVASTATIN SODIUM [Concomitant]
     Route: 048
  8. TORSEMIDE [Concomitant]
     Route: 048

REACTIONS (3)
  - CONTUSION [None]
  - FALL [None]
  - SKIN TOXICITY [None]
